FAERS Safety Report 9365860 (Version 5)
Quarter: 2013Q4

REPORT INFORMATION
  Report Type: Report from Study
  Country: BR (occurrence: BR)
  Receive Date: 20130625
  Receipt Date: 20131126
  Transmission Date: 20140711
  Serious: Yes (Hospitalization, Other)
  Sender: FDA-Public Use
  Company Number: PHHY2013BR064731

PATIENT
  Age: 79 Year
  Sex: Male

DRUGS (10)
  1. DIOVAN AMLO FIX [Suspect]
     Indication: HYPERTENSION
     Dosage: 1 DF, (160MG VALS/ 5MG AMLO) DAILY
     Route: 048
  2. DIOVAN AMLO FIX [Suspect]
     Dosage: 1 DF, (320MG VALS/5 MG AMLO) DAILY
     Route: 048
  3. GALVUS [Suspect]
     Indication: DIABETES MELLITUS
     Dosage: 1 DF (50 MG) DAILY
     Route: 048
  4. PLAVIX [Concomitant]
     Dosage: UNK UKN, UNK
  5. LIPITOR [Concomitant]
     Indication: DIABETES MELLITUS
     Dosage: 1 DF, (40 MG) DAILY
     Route: 048
  6. ASPIRIN PREVENT [Concomitant]
     Dosage: UNK UKN, UNK
  7. INSULIN [Concomitant]
     Indication: DIABETES MELLITUS
     Dosage: 1 DF, (15 MG) ON ARM, DAILY
     Dates: start: 201306
  8. PANTOPRAZOLE [Concomitant]
     Indication: GASTRIC DISORDER
     Dosage: 1 DF, (20 MG) DAILY
     Route: 048
     Dates: start: 201306
  9. OMEPRAZOLE [Concomitant]
     Indication: GASTRIC DISORDER
     Dosage: 1 DF, DAILY
     Route: 048
     Dates: start: 201306
  10. LOZEPREL [Concomitant]
     Indication: GASTRIC DISORDER
     Dosage: 1 DF, DAILY
     Route: 048
     Dates: start: 201306

REACTIONS (4)
  - Infarction [Recovered/Resolved]
  - Coronary artery occlusion [Recovered/Resolved]
  - Hyperglycaemia [Recovered/Resolved]
  - Dizziness [Not Recovered/Not Resolved]
